FAERS Safety Report 20207949 (Version 1)
Quarter: 2021Q4

REPORT INFORMATION
  Report Type: Spontaneous
  Country: US (occurrence: None)
  Receive Date: 20211220
  Receipt Date: 20211220
  Transmission Date: 20220303
  Serious: Yes (Hospitalization)
  Sender: FDA-Public Use
  Company Number: None

PATIENT
  Sex: Male

DRUGS (1)
  1. REGEN-COV [Suspect]
     Active Substance: CASIRIVIMAB\IMDEVIMAB
     Indication: COVID-19 treatment

REACTIONS (6)
  - Infusion related reaction [None]
  - Syncope [None]
  - Unresponsive to stimuli [None]
  - Seizure [None]
  - Hypotension [None]
  - Bradycardia [None]

NARRATIVE: CASE EVENT DATE: 20211219
